FAERS Safety Report 8265936-2 (Version None)
Quarter: 2012Q2

REPORT INFORMATION
  Report Type: 
  Country: None (occurrence: None)
  Receive Date: 20120406
  Receipt Date: 20120403
  Transmission Date: 20120825
  Serious: Yes (Hospitalization)
  Sender: FDA-Public Use
  Company Number: IE-MERCK-1012GBR00090

PATIENT
  Sex: Male

DRUGS (5)
  1. METFORMIN [Concomitant]
     Route: 065
  2. TROSPIUM CHLORIDE [Concomitant]
     Route: 065
  3. COZAAR [Suspect]
     Route: 048
     Dates: start: 20100101
  4. ASPIRIN [Concomitant]
     Route: 065
  5. GLICLAZIDE [Concomitant]
     Route: 065

REACTIONS (2)
  - GASTROINTESTINAL DISORDER [None]
  - FUNCTIONAL GASTROINTESTINAL DISORDER [None]
